FAERS Safety Report 17792101 (Version 7)
Quarter: 2022Q4

REPORT INFORMATION
  Report Type: Report from Study
  Country: FR (occurrence: FR)
  Receive Date: 20200515
  Receipt Date: 20221021
  Transmission Date: 20230112
  Serious: Yes (Hospitalization)
  Sender: FDA-Public Use
  Company Number: NVSC2020FR121197

PATIENT
  Age: 46 Year
  Sex: Female
  Weight: 87 kg

DRUGS (6)
  1. SPARTALIZUMAB [Suspect]
     Active Substance: SPARTALIZUMAB
     Indication: Metastatic malignant melanoma
     Dosage: 400 MG, Q4W
     Route: 042
     Dates: start: 20191105
  2. RIBOCICLIB [Suspect]
     Active Substance: RIBOCICLIB
     Indication: Metastatic malignant melanoma
     Dosage: 200 MG, QD
     Route: 048
     Dates: start: 20191105, end: 20200501
  3. LEVOTHYROXINE [Concomitant]
     Active Substance: LEVOTHYROXINE
     Indication: Papillary thyroid cancer
     Dosage: UNK
     Route: 065
     Dates: start: 2015
  4. ACETAMINOPHEN\CODEINE PHOSPHATE [Concomitant]
     Active Substance: ACETAMINOPHEN\CODEINE PHOSPHATE
     Indication: Headache
     Dosage: UNK
     Route: 065
     Dates: start: 20190923
  5. PROPRANOLOL HYDROCHLORIDE [Concomitant]
     Active Substance: PROPRANOLOL HYDROCHLORIDE
     Indication: Blood pressure increased
     Dosage: UNK
     Route: 065
     Dates: start: 2002
  6. POTASSIUM CHLORIDE [Concomitant]
     Active Substance: POTASSIUM CHLORIDE
     Indication: Hypokalaemia
     Dosage: UNK
     Route: 065
     Dates: start: 20191230

REACTIONS (2)
  - Gastritis [Not Recovered/Not Resolved]
  - Pyrexia [Not Recovered/Not Resolved]

NARRATIVE: CASE EVENT DATE: 20200421
